FAERS Safety Report 9284751 (Version 1)
Quarter: 2013Q2

REPORT INFORMATION
  Report Type: Spontaneous
  Country: DE (occurrence: DE)
  Receive Date: 20130513
  Receipt Date: 20130513
  Transmission Date: 20140414
  Serious: Yes (Hospitalization)
  Sender: FDA-Public Use
  Company Number: DE-BIOGENIDEC-2013BI041391

PATIENT
  Age: 49 Year
  Sex: Female
  Weight: 79 kg

DRUGS (2)
  1. AVONEX [Suspect]
     Indication: MULTIPLE SCLEROSIS
     Route: 030
     Dates: start: 20120716
  2. KINZALKOMB [Concomitant]
     Indication: HYPERTENSION
     Route: 048

REACTIONS (2)
  - Ossicle disorder [Recovered/Resolved]
  - Hypertension [Not Recovered/Not Resolved]
